FAERS Safety Report 14889666 (Version 1)
Quarter: 2018Q2

REPORT INFORMATION
  Report Type: Spontaneous
  Country: EG (occurrence: EG)
  Receive Date: 20180514
  Receipt Date: 20180514
  Transmission Date: 20180711
  Serious: Yes (Death)
  Sender: FDA-Public Use
  Company Number: EG-ROCHE-2122797

PATIENT
  Sex: Male

DRUGS (1)
  1. LUCENTIS [Suspect]
     Active Substance: RANIBIZUMAB
     Indication: RETINOPATHY OF PREMATURITY
     Dosage: 0.25 MG, (QUARTER OF THE AMPOULE)
     Route: 050
     Dates: start: 20180415

REACTIONS (2)
  - Sudden infant death syndrome [Fatal]
  - Off label use [Unknown]
